FAERS Safety Report 4639834-7 (Version None)
Quarter: 2005Q2

REPORT INFORMATION
  Report Type: 
  Country: None (occurrence: None)
  Receive Date: 20050415
  Receipt Date: 20050408
  Transmission Date: 20051028
  Serious: Yes (Life-Threatening, Hospitalization)
  Sender: FDA-Public Use
  Company Number: 04P-083-0279411-00

PATIENT
  Age: 52 Year
  Sex: Male

DRUGS (3)
  1. DEPAKENE [Suspect]
     Indication: CLONIC CONVULSION
     Dosage: 200 MG, 3 IN 1 D, ORAL
     Route: 048
     Dates: start: 20050701, end: 20040901
  2. DEPAKINE (DEPACON) (VALPROATE SODIUM) [Suspect]
     Indication: STATUS EPILEPTICUS
     Dosage: 2000 MG, INTRAVENOUS
     Route: 042
     Dates: start: 20040901, end: 20040101
  3. PHENOBARBITAL SODIUM [Concomitant]

REACTIONS (5)
  - ELECTROENCEPHALOGRAM ABNORMAL [None]
  - HYPERAMMONAEMIA [None]
  - METABOLIC ENCEPHALOPATHY [None]
  - MYOCLONIC EPILEPSY [None]
  - STATUS EPILEPTICUS [None]
